FAERS Safety Report 6325378-3 (Version None)
Quarter: 2009Q3

REPORT INFORMATION
  Report Type: 
  Country: None (occurrence: None)
  Receive Date: 20090820
  Receipt Date: 20090807
  Transmission Date: 20100115
  Serious: Yes (Hospitalization)
  Sender: FDA-Public Use
  Company Number: 2009SP019131

PATIENT
  Sex: Male

DRUGS (1)
  1. TEMODAL [Suspect]
     Indication: ASTROCYTOMA

REACTIONS (12)
  - ABDOMINAL PAIN UPPER [None]
  - BRAIN NEOPLASM MALIGNANT [None]
  - DISEASE RECURRENCE [None]
  - EXPIRED DRUG ADMINISTERED [None]
  - GENERAL PHYSICAL HEALTH DETERIORATION [None]
  - HAEMATEMESIS [None]
  - HYPOVOLAEMIC SHOCK [None]
  - INTENTIONAL OVERDOSE [None]
  - NEUROLOGICAL SYMPTOM [None]
  - PLATELET COUNT DECREASED [None]
  - PNEUMONIA [None]
  - WHITE BLOOD CELL COUNT DECREASED [None]
